FAERS Safety Report 4620476-4 (Version None)
Quarter: 2005Q1

REPORT INFORMATION
  Report Type: 
  Country: None (occurrence: None)
  Receive Date: 20050324
  Receipt Date: 20050311
  Transmission Date: 20050727
  Serious: Yes (Other)
  Sender: FDA-Public Use
  Company Number: 2005044700

PATIENT
  Sex: Female

DRUGS (8)
  1. NEURONTIN [Suspect]
     Indication: PAIN
     Dosage: 800 MG (400 MG, 2 IN 1 D), ORAL
     Route: 048
     Dates: start: 19980101
  2. GABAPENTIN [Suspect]
     Indication: PAIN
     Dosage: 3600 MG (1200 MG, 3 IN 1 D)
  3. TOCOPHEROL (TOCOPHEROL) [Concomitant]
  4. BACLOFEN [Concomitant]
  5. FUROSEMIDE [Concomitant]
  6. POTASSIUM ACETATE [Concomitant]
  7. LEKOVIT CA (CALCIUM CARBONAE, COLECALCIFEROL) [Concomitant]
  8. PRENATAL VITAMINS (ASCORBIC ACID, BIOTIN, MINERALS NOS, NICOTINIC ACID [Concomitant]

REACTIONS (14)
  - ACNE [None]
  - CHROMATURIA [None]
  - DEPRESSED LEVEL OF CONSCIOUSNESS [None]
  - DIABETES MELLITUS [None]
  - DYSURIA [None]
  - FATIGUE [None]
  - FEELING ABNORMAL [None]
  - HALLUCINATION, AUDITORY [None]
  - MEMORY IMPAIRMENT [None]
  - PAIN [None]
  - PARANOIA [None]
  - SKIN ATROPHY [None]
  - SPEECH DISORDER [None]
  - URINE ANALYSIS ABNORMAL [None]
